FAERS Safety Report 25414302 (Version 2)
Quarter: 2025Q2

REPORT INFORMATION
  Report Type: Spontaneous
  Country: US (occurrence: US)
  Receive Date: 20250609
  Receipt Date: 20250619
  Transmission Date: 20250716
  Serious: No
  Sender: SANOFI AVENTIS
  Company Number: US-SA-2025SA161303

PATIENT
  Age: 64 Year
  Sex: Male
  Weight: 81.82 kg

DRUGS (4)
  1. DUPIXENT [Suspect]
     Active Substance: DUPILUMAB
     Indication: Psoriasis
     Route: 058
     Dates: start: 202505, end: 202505
  2. DUPIXENT [Suspect]
     Active Substance: DUPILUMAB
     Indication: Dermatitis atopic
     Dosage: 300 MG, QOW
     Route: 058
     Dates: start: 2025
  3. HYDROCHLOROTHIAZIDE\VALSARTAN [Concomitant]
     Active Substance: HYDROCHLOROTHIAZIDE\VALSARTAN
  4. AMLODIPINE BESYLATE [Concomitant]
     Active Substance: AMLODIPINE BESYLATE

REACTIONS (12)
  - Rash macular [Unknown]
  - Skin exfoliation [Unknown]
  - Pruritus [Unknown]
  - Rhinorrhoea [Unknown]
  - Diarrhoea [Unknown]
  - Swelling of eyelid [Unknown]
  - Skin fissures [Unknown]
  - Heart rate increased [Unknown]
  - Skin discolouration [Unknown]
  - Peripheral swelling [Unknown]
  - Feeling cold [Unknown]
  - Product use in unapproved indication [Unknown]

NARRATIVE: CASE EVENT DATE: 20250101
